FAERS Safety Report 11987722 (Version 1)
Quarter: 2016Q1

REPORT INFORMATION
  Report Type: Spontaneous
  Country: US (occurrence: None)
  Receive Date: 20160201
  Receipt Date: 20160201
  Transmission Date: 20160526
  Serious: Yes (Life-Threatening, Hospitalization, Disabling, Other)
  Sender: FDA-Public Use
  Company Number: None

PATIENT
  Age: 63 Year
  Sex: Female
  Weight: 145.15 kg

DRUGS (9)
  1. POTASSIUM [Concomitant]
     Active Substance: POTASSIUM
  2. HUMULIN REGULAR INSULIN [Concomitant]
  3. LASIX [Concomitant]
     Active Substance: FUROSEMIDE
  4. ACETAMINOPHEN. [Concomitant]
     Active Substance: ACETAMINOPHEN
  5. METOPROLOL. [Concomitant]
     Active Substance: METOPROLOL
  6. PEPCID [Concomitant]
     Active Substance: FAMOTIDINE
  7. MULTIVITAMIN [Concomitant]
     Active Substance: VITAMINS
  8. TANZEUM [Suspect]
     Active Substance: ALBIGLUTIDE
     Indication: GLYCOSYLATED HAEMOGLOBIN DECREASED
     Dosage: TANZEUM 50 MG ONCE A WEEK GIVEN INTO/UNDER THE SKIN
     Dates: start: 20151025, end: 20151213
  9. VITAMIN B COMPLEX WITH C [Concomitant]
     Active Substance: ASCORBIC ACID\CALCIUM PANTOTHENATE\CYANOCOBALAMIN\NIACINAMIDE\PYRIDOXINE HYDROCHLORIDE\RIBOFLAVIN\THIAMINE MONONITRATE

REACTIONS (4)
  - Influenza like illness [None]
  - Dialysis [None]
  - Acute kidney injury [None]
  - Asthenia [None]

NARRATIVE: CASE EVENT DATE: 20160104
